FAERS Safety Report 26105865 (Version 1)
Quarter: 2025Q4

REPORT INFORMATION
  Report Type: Spontaneous
  Country: US (occurrence: US)
  Receive Date: 20251201
  Receipt Date: 20251201
  Transmission Date: 20260117
  Serious: No
  Sender: BIOGEN
  Company Number: US-BIOGEN-2092899

PATIENT

DRUGS (1)
  1. ZURZUVAE [Suspect]
     Active Substance: ZURANOLONE
     Indication: Product used for unknown indication
     Dosage: FULL DOSAGE OF ZURZUVAE

REACTIONS (2)
  - Nausea [Recovered/Resolved]
  - Insomnia [Recovered/Resolved]
